FAERS Safety Report 13819418 (Version 1)
Quarter: 2017Q3

REPORT INFORMATION
  Report Type: Report from Study
  Country: US (occurrence: US)
  Receive Date: 20170731
  Receipt Date: 20170731
  Transmission Date: 20171127
  Serious: No
  Sender: FDA-Public Use
  Company Number: US-EXELIXIS-CABO-17008937

PATIENT
  Age: 82 Year
  Sex: Male

DRUGS (14)
  1. BURINEX [Concomitant]
     Active Substance: BUMETANIDE
  2. METOPROLOL. [Concomitant]
     Active Substance: METOPROLOL
  3. CABOMETYX [Suspect]
     Active Substance: CABOZANTINIB S-MALATE
     Indication: RENAL CANCER
     Dosage: 40 MG, QD
     Route: 048
     Dates: start: 201703
  4. BENZONATATE. [Concomitant]
     Active Substance: BENZONATATE
  5. CLARITIN [Concomitant]
     Active Substance: LORATADINE
  6. ALBUTEROL. [Concomitant]
     Active Substance: ALBUTEROL
  7. ALLOPURINOL. [Concomitant]
     Active Substance: ALLOPURINOL
  8. DALIRESP [Concomitant]
     Active Substance: ROFLUMILAST
  9. GABAPENTIN. [Concomitant]
     Active Substance: GABAPENTIN
  10. LOPERAMIDE [Concomitant]
     Active Substance: LOPERAMIDE
  11. FUROSEMIDE. [Concomitant]
     Active Substance: FUROSEMIDE
  12. MAGNESIUM [Concomitant]
     Active Substance: MAGNESIUM
  13. ADVAIR HFA [Concomitant]
     Active Substance: FLUTICASONE PROPIONATE\SALMETEROL XINAFOATE
  14. BISOPROLOL [Concomitant]
     Active Substance: BISOPROLOL

REACTIONS (3)
  - Glossodynia [Unknown]
  - Blister [Unknown]
  - Dysphonia [Unknown]

NARRATIVE: CASE EVENT DATE: 20170405
